FAERS Safety Report 5194049-1 (Version None)
Quarter: 2006Q4

REPORT INFORMATION
  Report Type: 
  Country: None (occurrence: None)
  Receive Date: 20061228
  Receipt Date: 20061009
  Transmission Date: 20070319
  Serious: Yes (Hospitalization)
  Sender: FDA-Public Use
  Company Number: US-ELI_LILLY_AND_COMPANY-US200610001582

PATIENT
  Age: 82 Year
  Sex: Female

DRUGS (2)
  1. FORTEO [Suspect]
     Indication: OSTEOPOROSIS
     Dosage: UNK, UNK
     Dates: start: 20050201
  2. EVISTA [Suspect]
     Indication: OSTEOPOROSIS

REACTIONS (9)
  - CARDIAC PACEMAKER INSERTION [None]
  - CONTRAINDICATION TO MEDICAL TREATMENT [None]
  - CYSTITIS [None]
  - DIABETIC COMPLICATION [None]
  - DRUG ADMINISTRATION ERROR [None]
  - DRUG PRESCRIBING ERROR [None]
  - MEDICAL DEVICE COMPLICATION [None]
  - PHARMACEUTICAL PRODUCT COMPLAINT [None]
  - VISUAL ACUITY REDUCED [None]
